FAERS Safety Report 24015242 (Version 1)
Quarter: 2024Q2

REPORT INFORMATION
  Report Type: Report from Study
  Country: US (occurrence: US)
  Receive Date: 20240626
  Receipt Date: 20240626
  Transmission Date: 20240715
  Serious: Yes (Other)
  Sender: FDA-Public Use
  Company Number: US-002147023-NVSC2024US116713

PATIENT
  Sex: Male
  Weight: 137 kg

DRUGS (4)
  1. ENTRESTO [Suspect]
     Active Substance: SACUBITRIL\VALSARTAN
     Indication: Left ventricular failure
     Dosage: 24.26 MG, BID
     Route: 048
     Dates: start: 20231026
  2. JARDIANCE [Concomitant]
     Active Substance: EMPAGLIFLOZIN
     Indication: Left ventricular failure
     Dosage: 10 MG, QD
     Route: 048
     Dates: start: 20231026
  3. METOPROLOL [Concomitant]
     Active Substance: METOPROLOL
     Indication: Left ventricular failure
     Dosage: 100 MG, QD
     Route: 048
     Dates: start: 20230803
  4. ISOSORBIDE [Concomitant]
     Active Substance: ISOSORBIDE
     Indication: Coronary artery disease
     Dosage: 60 MG, QD
     Route: 048
     Dates: start: 20240401

REACTIONS (1)
  - Chest pain [Recovered/Resolved]
